FAERS Safety Report 11287280 (Version 3)
Quarter: 2016Q4

REPORT INFORMATION
  Report Type: Spontaneous
  Country: US (occurrence: US)
  Receive Date: 20150721
  Receipt Date: 20161031
  Transmission Date: 20170206
  Serious: Yes (Hospitalization, Other)
  Sender: FDA-Public Use
  Company Number: US-PFIZER INC-2015237240

PATIENT
  Age: 70 Year
  Sex: Female
  Weight: 58.96 kg

DRUGS (5)
  1. LYRICA [Suspect]
     Active Substance: PREGABALIN
     Indication: SPINAL CORD DISORDER
     Dosage: 100 MG, 3X/DAY
     Route: 048
     Dates: start: 201208
  2. LYRICA [Suspect]
     Active Substance: PREGABALIN
     Dosage: 450 MG, 3X/DAY
     Route: 048
  3. LYRICA [Suspect]
     Active Substance: PREGABALIN
     Dosage: 450 MG, 1X/DAY
     Route: 048
  4. LYRICA [Suspect]
     Active Substance: PREGABALIN
     Indication: LYMPHOEDEMA
     Dosage: 300 MG, 3X/DAY
     Route: 048
  5. LYRICA [Suspect]
     Active Substance: PREGABALIN
     Dosage: 150 MG, 3X/DAY
     Route: 048
     Dates: start: 201505

REACTIONS (5)
  - Drug ineffective [Recovered/Resolved]
  - Arthropathy [Recovered/Resolved]
  - Pruritus [Recovered/Resolved]
  - Limb discomfort [Recovered/Resolved]
  - Prescribed overdose [Unknown]

NARRATIVE: CASE EVENT DATE: 201501
